FAERS Safety Report 5993319-4 (Version None)
Quarter: 2008Q4

REPORT INFORMATION
  Report Type: 
  Country: None (occurrence: None)
  Receive Date: 20081212
  Receipt Date: 20081205
  Transmission Date: 20090506
  Serious: Yes (Other)
  Sender: FDA-Public Use
  Company Number: AT-ASTRAZENECA-2008PK02657

PATIENT
  Age: 451 Month
  Sex: Female
  Weight: 55 kg

DRUGS (2)
  1. SEROQUEL [Suspect]
     Indication: SCHIZOPHRENIA
     Route: 048
     Dates: start: 20010101
  2. ZYPREXA [Concomitant]
     Indication: SLEEP DISORDER
     Dates: end: 20081202

REACTIONS (1)
  - LEUKOPENIA [None]
